FAERS Safety Report 23737651 (Version 3)
Quarter: 2024Q2

REPORT INFORMATION
  Report Type: Report from Study
  Country: US (occurrence: US)
  Receive Date: 20240412
  Receipt Date: 20240429
  Transmission Date: 20240716
  Serious: Yes (Hospitalization, Other)
  Sender: FDA-Public Use
  Company Number: US-BAXTER-2024BAX016252

PATIENT
  Age: 78 Year
  Sex: Female
  Weight: 69.9 kg

DRUGS (27)
  1. CYCLOPHOSPHAMIDE [Suspect]
     Active Substance: CYCLOPHOSPHAMIDE
     Indication: Acute lymphocytic leukaemia
     Dosage: 150 MG/M2 CYCLIC (150 MG/M2, EVERY 12 HRS X 6 DOSES, DAYS 1-3, CYCLE: 1, 3, 5, 7), FIRST COURSE, AS
     Route: 065
     Dates: start: 20240125
  2. CYCLOPHOSPHAMIDE [Suspect]
     Active Substance: CYCLOPHOSPHAMIDE
     Indication: Philadelphia chromosome negative
  3. CYCLOPHOSPHAMIDE [Suspect]
     Active Substance: CYCLOPHOSPHAMIDE
     Indication: B-cell type acute leukaemia
  4. MESNA [Suspect]
     Active Substance: MESNA
     Indication: Philadelphia chromosome negative
     Dosage: 300 MG/M2 CYCLIC (300 MG/M2, SCHEDULE: DAYS 1-3; CYCLE: 1, 3, 5, 7), ONGOING
     Route: 042
     Dates: start: 20240125
  5. MESNA [Suspect]
     Active Substance: MESNA
     Indication: B-cell type acute leukaemia
  6. MESNA [Suspect]
     Active Substance: MESNA
     Indication: Acute lymphocytic leukaemia
  7. DEXAMETHASONE [Suspect]
     Active Substance: DEXAMETHASONE
     Indication: Philadelphia chromosome negative
     Dosage: 20 MG CYCLIC (20 MG, SCHEDULE: DAYS 1-4, DAYS 11-14; CYCLE: 1, 3, 5, 7), ONGOING
     Route: 065
     Dates: start: 20240125
  8. DEXAMETHASONE [Suspect]
     Active Substance: DEXAMETHASONE
     Indication: B-cell type acute leukaemia
  9. DEXAMETHASONE [Suspect]
     Active Substance: DEXAMETHASONE
     Indication: Acute lymphocytic leukaemia
  10. INOTUZUMAB OZOGAMICIN [Suspect]
     Active Substance: INOTUZUMAB OZOGAMICIN
     Indication: Acute lymphocytic leukaemia
     Dosage: FIRST COURSE AND TOTAL DOSE ADMINISTERED IN COURSE 2 WAS 0.5 MG, C1: 0.6 MG/M2 D2, 0.3 MG/M2 D8 (TOT
     Route: 042
     Dates: start: 20240126
  11. INOTUZUMAB OZOGAMICIN [Suspect]
     Active Substance: INOTUZUMAB OZOGAMICIN
     Indication: Philadelphia chromosome negative
  12. INOTUZUMAB OZOGAMICIN [Suspect]
     Active Substance: INOTUZUMAB OZOGAMICIN
     Indication: B-cell type acute leukaemia
  13. CYTARABINE [Suspect]
     Active Substance: CYTARABINE
     Indication: Acute lymphocytic leukaemia
     Dosage: 100 MG, SCHEDULE: DAY 2, DAY 8; CYCLE: 1-4, CYCLICAL, FIRST REGIMEN
     Route: 037
     Dates: start: 20240217
  14. CYTARABINE [Suspect]
     Active Substance: CYTARABINE
     Indication: Philadelphia chromosome negative
     Dosage: 500 MG/M2 CYCLIC (0.5 G/M2/DOSE, SCHEDULE: EVERY 12 HRS X 4 DOSES, DAYS 2, 3. CYCLE: 2, 4, 6, 8, ONG
     Route: 042
     Dates: start: 20240218
  15. CYTARABINE [Suspect]
     Active Substance: CYTARABINE
     Indication: B-cell type acute leukaemia
  16. METHOTREXATE SODIUM [Suspect]
     Active Substance: METHOTREXATE SODIUM
     Indication: Acute lymphocytic leukaemia
     Dosage: 12 MG, SCHEDULE: DAY 2, DAY 8; CYCLE: 1-4, CYCLIC, FIRST REGIMEN
     Route: 037
     Dates: start: 20240126
  17. METHOTREXATE SODIUM [Suspect]
     Active Substance: METHOTREXATE SODIUM
     Indication: Philadelphia chromosome negative
     Dosage: 250 MG/M2, SCHEDULE: DAY 1; CYCLE: 2,4, 6, 8, CYCLICAL
     Route: 042
     Dates: start: 20240217, end: 20240217
  18. METHOTREXATE SODIUM [Suspect]
     Active Substance: METHOTREXATE SODIUM
     Indication: B-cell type acute leukaemia
  19. METHYLPREDNISOLONE ACETATE [Suspect]
     Active Substance: METHYLPREDNISOLONE ACETATE
     Indication: Acute lymphocytic leukaemia
     Dosage: FIRST COURSE AND TOTAL DOSE ADMINISTERED IN COURSE 2 WAS 300 MG, 50 MG, EVERY 12 HRS X 6 DOSES, DAYS
     Route: 042
     Dates: start: 20240217
  20. METHYLPREDNISOLONE ACETATE [Suspect]
     Active Substance: METHYLPREDNISOLONE ACETATE
     Indication: Philadelphia chromosome negative
  21. METHYLPREDNISOLONE ACETATE [Suspect]
     Active Substance: METHYLPREDNISOLONE ACETATE
     Indication: B-cell type acute leukaemia
  22. RITUXIMAB [Suspect]
     Active Substance: RITUXIMAB
     Indication: Acute lymphocytic leukaemia
     Dosage: FIRST COURSE AND TOTAL DOSE ADMINISTERED IN COURSE 2 WAS 600 MG, 375 MG/M2, DAY 2, DAY 8; CYCLE: 1-4
     Route: 065
     Dates: start: 20240126
  23. RITUXIMAB [Suspect]
     Active Substance: RITUXIMAB
     Indication: Philadelphia chromosome negative
  24. RITUXIMAB [Suspect]
     Active Substance: RITUXIMAB
     Indication: B-cell type acute leukaemia
  25. VINCRISTINE SULFATE [Suspect]
     Active Substance: VINCRISTINE SULFATE
     Indication: Acute lymphocytic leukaemia
     Dosage: 2 MG, DAY 1, DAY 8; CYCLE: 1, 3, 5, 7, CYCLIC, ONGOING, FIRST COURSE, AS A PART OF INOTUZUMAB OZOGAM
     Route: 065
     Dates: start: 20240125
  26. VINCRISTINE SULFATE [Suspect]
     Active Substance: VINCRISTINE SULFATE
     Indication: Philadelphia chromosome negative
  27. VINCRISTINE SULFATE [Suspect]
     Active Substance: VINCRISTINE SULFATE
     Indication: B-cell type acute leukaemia

REACTIONS (4)
  - Delirium [Recovering/Resolving]
  - Sepsis [Recovering/Resolving]
  - Febrile neutropenia [Recovering/Resolving]
  - Pneumonia aspiration [Recovering/Resolving]

NARRATIVE: CASE EVENT DATE: 20240227
